FAERS Safety Report 11045309 (Version 1)
Quarter: 2015Q2

REPORT INFORMATION
  Report Type: Report from Study
  Country: JP (occurrence: JP)
  Receive Date: 20150417
  Receipt Date: 20150417
  Transmission Date: 20150821
  Serious: Yes (Hospitalization, Disabling, Other)
  Sender: FDA-Public Use
  Company Number: JP-ASTRAZENECA-2015SE35708

PATIENT
  Age: 19695 Day
  Sex: Male
  Weight: 114.3 kg

DRUGS (17)
  1. WARFARIN [Concomitant]
     Active Substance: WARFARIN
     Route: 048
  2. OLMETEC [Concomitant]
     Active Substance: OLMESARTAN MEDOXOMIL
     Route: 048
  3. AMOBAN [Concomitant]
     Active Substance: ZOPICLONE
     Route: 048
  4. VITAMINS NOS [Concomitant]
     Active Substance: VITAMINS
     Route: 048
  5. TAKEPRON [Concomitant]
     Active Substance: LANSOPRAZOLE
     Route: 048
  6. ROCALTROL [Concomitant]
     Active Substance: CALCITRIOL
     Route: 048
  7. TANKARU [Concomitant]
     Route: 048
  8. ONGLYZA [Suspect]
     Active Substance: SAXAGLIPTIN HYDROCHLORIDE
     Indication: TYPE 2 DIABETES MELLITUS
     Route: 048
     Dates: start: 20140812, end: 20141004
  9. ARTIST [Concomitant]
     Active Substance: CARVEDILOL
     Route: 048
  10. LIVALO [Concomitant]
     Active Substance: PITAVASTATIN CALCIUM
     Route: 048
  11. LASIX [Concomitant]
     Active Substance: FUROSEMIDE
     Route: 048
  12. LIPLE [Concomitant]
  13. PLAVIX [Concomitant]
     Active Substance: CLOPIDOGREL BISULFATE
     Route: 048
  14. TRAMCET [Concomitant]
     Active Substance: ACETAMINOPHEN\TRAMADOL
     Route: 048
  15. FOSRENOL [Concomitant]
     Active Substance: LANTHANUM CARBONATE
     Route: 048
  16. BAYASPIRIN [Concomitant]
     Active Substance: ASPIRIN
     Route: 048
  17. NOVORAPID [Concomitant]
     Active Substance: INSULIN ASPART
     Dates: end: 20141004

REACTIONS (3)
  - C-reactive protein increased [Unknown]
  - Dry gangrene [Recovered/Resolved with Sequelae]
  - Renal impairment [Unknown]

NARRATIVE: CASE EVENT DATE: 20140930
